FAERS Safety Report 25407407 (Version 4)
Quarter: 2025Q2

REPORT INFORMATION
  Report Type: Report from Study
  Country: CA (occurrence: CA)
  Receive Date: 20250606
  Receipt Date: 20250626
  Transmission Date: 20250717
  Serious: Yes (Hospitalization)
  Sender: ABBVIE
  Company Number: CA-ABBVIE-6299816

PATIENT
  Age: 69 Year
  Sex: Female

DRUGS (5)
  1. VYALEV [Suspect]
     Active Substance: FOSCARBIDOPA\FOSLEVODOPA
     Indication: Product used for unknown indication
     Route: 058
     Dates: start: 20250512
  2. BACLOFEN [Concomitant]
     Active Substance: BACLOFEN
     Indication: Product used for unknown indication
  3. BENSERAZIDE\LEVODOPA [Concomitant]
     Active Substance: BENSERAZIDE\LEVODOPA
     Indication: Product used for unknown indication
  4. CARBIDOPA\LEVODOPA [Concomitant]
     Active Substance: CARBIDOPA\LEVODOPA
     Indication: Product used for unknown indication
  5. LORAZEPAM [Concomitant]
     Active Substance: LORAZEPAM
     Indication: Product used for unknown indication

REACTIONS (18)
  - Urinary tract infection [Recovered/Resolved]
  - Malaise [Unknown]
  - On and off phenomenon [Unknown]
  - Hypoaesthesia [Not Recovered/Not Resolved]
  - Asthenia [Unknown]
  - Muscle spasms [Unknown]
  - Dehydration [Unknown]
  - Sensory loss [Unknown]
  - Device issue [Unknown]
  - Hyperventilation [Unknown]
  - Heart rate increased [Unknown]
  - Musculoskeletal disorder [Unknown]
  - Skin fissures [Unknown]
  - Urinary retention [Unknown]
  - Hypersensitivity [Unknown]
  - Catheter site related reaction [Unknown]
  - Hyperhidrosis [Unknown]
  - Catheter site discolouration [Unknown]

NARRATIVE: CASE EVENT DATE: 20250101
